FAERS Safety Report 24590542 (Version 1)
Quarter: 2024Q4

REPORT INFORMATION
  Report Type: Report from Study
  Country: CA (occurrence: CA)
  Receive Date: 20241107
  Receipt Date: 20241107
  Transmission Date: 20250114
  Serious: Yes (Hospitalization, Other)
  Sender: CELLTRION
  Company Number: CA-CELLTRION INC.-2024CA027167

PATIENT

DRUGS (1)
  1. YUFLYMA [Suspect]
     Active Substance: ADALIMUMAB-AATY
     Indication: Crohn^s disease
     Route: 058

REACTIONS (1)
  - Intestinal obstruction [Unknown]
